FAERS Safety Report 16662487 (Version 1)
Quarter: 2019Q3

REPORT INFORMATION
  Report Type: Spontaneous
  Country: US (occurrence: US)
  Receive Date: 20190802
  Receipt Date: 20190802
  Transmission Date: 20191004
  Serious: No
  Sender: FDA-Public Use
  Company Number: None

PATIENT
  Age: 62 Year
  Sex: Male
  Weight: 69.75 kg

DRUGS (20)
  1. NACETYCYSTEINE [Concomitant]
  2. METHYLSULFONALMETHAN (MSM) [Concomitant]
  3. SAVELLA [Suspect]
     Active Substance: MILNACIPRAN HYDROCHLORIDE
     Indication: RHEUMATOID ARTHRITIS
     Dosage: ?          QUANTITY:1 CAPSULE(S);?
     Route: 048
     Dates: start: 20170110, end: 20170215
  4. HYOSCYAMINE. [Concomitant]
     Active Substance: HYOSCYAMINE
  5. MIRALAX [Concomitant]
     Active Substance: POLYETHYLENE GLYCOL 3350
  6. CALCIUM [Concomitant]
     Active Substance: CALCIUM
  7. CONDROTIN [Concomitant]
  8. MAGNESIUM [Concomitant]
     Active Substance: MAGNESIUM
  9. VITAMIN D [Concomitant]
     Active Substance: VITAMIN D NOS
  10. TYLENOL [Concomitant]
     Active Substance: ACETAMINOPHEN
  11. OTHER PRIOBIOTIC PREBIOTIC [Concomitant]
  12. TRAMADOL. [Concomitant]
     Active Substance: TRAMADOL
  13. KAOPECTATE REGULAR STRENGTH CHERRY FLAVOR [Concomitant]
     Active Substance: BISMUTH SUBSALICYLATE
  14. SACCHAROMYCES BOULARDII [Concomitant]
     Active Substance: SACCHAROMYCES CEREVISIAE
  15. ESOMEPRAZOLE. [Concomitant]
     Active Substance: ESOMEPRAZOLE MAGNESIUM
  16. DIAZEPAM. [Concomitant]
     Active Substance: DIAZEPAM
  17. MUCINEX [Concomitant]
     Active Substance: GUAIFENESIN
  18. HYDROXYCHLOROQUINE [Concomitant]
     Active Substance: HYDROXYCHLOROQUINE
  19. VITAMIN B COMPLEX [Concomitant]
     Active Substance: CYANOCOBALAMIN\DEXPANTHENOL\NIACINAMIDE\PYRIDOXINE HYDROCHLORIDE\RIBOFLAVIN 5^-PHOSPHATE SODIUM\THIAMINE HYDROCHLORIDE\VITAMIN B COMPLEX
  20. FISH OIL [Concomitant]
     Active Substance: FISH OIL

REACTIONS (5)
  - Faeces discoloured [None]
  - Urinary retention [None]
  - Flatulence [None]
  - Product substitution issue [None]
  - Irritable bowel syndrome [None]

NARRATIVE: CASE EVENT DATE: 20170201
